FAERS Safety Report 25732995 (Version 3)
Quarter: 2025Q4

REPORT INFORMATION
  Report Type: Report from Study
  Country: MX (occurrence: MX)
  Receive Date: 20250828
  Receipt Date: 20251031
  Transmission Date: 20260118
  Serious: Yes (Other)
  Sender: EMD SERONO INC
  Company Number: MX-Merck Healthcare KGaA-2025042873

PATIENT
  Age: 56 Year
  Sex: Female

DRUGS (1)
  1. SAIZEN [Suspect]
     Active Substance: SOMATROPIN
     Indication: Growth hormone deficiency
     Dates: start: 20231214

REACTIONS (5)
  - Neuropathy peripheral [Not Recovered/Not Resolved]
  - Diabetes mellitus [Not Recovered/Not Resolved]
  - Sciatica [Not Recovered/Not Resolved]
  - Gait inability [Not Recovered/Not Resolved]
  - Injection site bruising [Not Recovered/Not Resolved]
